FAERS Safety Report 16882373 (Version 3)
Quarter: 2019Q4

REPORT INFORMATION
  Report Type: Spontaneous
  Country: AT (occurrence: AT)
  Receive Date: 20191003
  Receipt Date: 20191024
  Transmission Date: 20200122
  Serious: Yes (Other)
  Sender: FDA-Public Use
  Company Number: AT-GILEAD-2019-0431609

PATIENT
  Sex: Male

DRUGS (2)
  1. VEMLIDY [Suspect]
     Active Substance: TENOFOVIR ALAFENAMIDE FUMARATE
     Indication: HEPATITIS B
     Route: 065
  2. VIREAD [Suspect]
     Active Substance: TENOFOVIR DISOPROXIL FUMARATE
     Indication: HEPATITIS B
     Dosage: 245 MG
     Route: 065
     Dates: start: 201910

REACTIONS (3)
  - Subdural haematoma [Unknown]
  - Intentional product use issue [Not Recovered/Not Resolved]
  - Product substitution [Not Recovered/Not Resolved]

NARRATIVE: CASE EVENT DATE: 2019
